FAERS Safety Report 6082214-0 (Version None)
Quarter: 2009Q1

REPORT INFORMATION
  Report Type: 
  Country: None (occurrence: None)
  Receive Date: 20090218
  Receipt Date: 20090212
  Transmission Date: 20090719
  Serious: Yes (Hospitalization)
  Sender: FDA-Public Use
  Company Number: B0558982A

PATIENT
  Age: 21 Year
  Sex: Female

DRUGS (8)
  1. CLAMOXYL [Suspect]
     Indication: PROPHYLAXIS
     Route: 042
     Dates: start: 20080226, end: 20080229
  2. LOXEN [Suspect]
     Route: 042
     Dates: start: 20080226
  3. ATARAX [Suspect]
     Dates: start: 20080227
  4. HYDROCORTISONE [Concomitant]
     Dates: start: 20080226
  5. PERFALGAN [Concomitant]
     Route: 042
     Dates: start: 20080228
  6. TARDYFERON [Concomitant]
  7. SPECIAFOLDINE [Concomitant]
  8. DIFFU K [Concomitant]

REACTIONS (16)
  - ANGINA PECTORIS [None]
  - CARDIAC FAILURE [None]
  - CHEST DISCOMFORT [None]
  - COUGH [None]
  - CREPITATIONS [None]
  - DRUG EXPOSURE DURING PREGNANCY [None]
  - DYSPNOEA [None]
  - HEADACHE [None]
  - HYPOCAPNIA [None]
  - HYPOKALAEMIA [None]
  - HYPOXIA [None]
  - PAIN IN EXTREMITY [None]
  - PLEURAL EFFUSION [None]
  - PULMONARY EMBOLISM [None]
  - PULMONARY OEDEMA [None]
  - RESPIRATORY DISORDER [None]
